FAERS Safety Report 7759591-5 (Version None)
Quarter: 2011Q3

REPORT INFORMATION
  Report Type: 
  Country: None (occurrence: None)
  Receive Date: 20110919
  Receipt Date: 20110907
  Transmission Date: 20111222
  Serious: No
  Sender: FDA-Public Use
  Company Number: US-JNJFOC-20110904145

PATIENT
  Age: 27 Year
  Sex: Male

DRUGS (4)
  1. PRISTIQ [Concomitant]
     Indication: DEPRESSION
     Route: 048
  2. BENZTROPINE MESYLATE [Concomitant]
     Route: 048
  3. CLONOPIN [Concomitant]
     Route: 048
  4. INVEGA SUSTENNA [Suspect]
     Indication: BIPOLAR I DISORDER
     Route: 030
     Dates: start: 20110101

REACTIONS (2)
  - GYNAECOMASTIA [None]
  - BLOOD PROLACTIN INCREASED [None]
